FAERS Safety Report 5597197-7 (Version None)
Quarter: 2008Q1

REPORT INFORMATION
  Report Type: 
  Country: None (occurrence: None)
  Receive Date: 20080121
  Receipt Date: 20080115
  Transmission Date: 20080703
  Serious: Yes (Other)
  Sender: FDA-Public Use
  Company Number: US-JNJFOC-20080103898

PATIENT
  Sex: Male
  Weight: 65.77 kg

DRUGS (1)
  1. LEVAQUIN [Suspect]
     Indication: BRONCHITIS
     Route: 048

REACTIONS (4)
  - DIARRHOEA [None]
  - GAIT DISTURBANCE [None]
  - PAIN IN EXTREMITY [None]
  - SENSITIVITY OF TEETH [None]
